FAERS Safety Report 7688301-5 (Version None)
Quarter: 2011Q3

REPORT INFORMATION
  Report Type: 
  Country: None (occurrence: None)
  Receive Date: 20110817
  Receipt Date: 20100923
  Transmission Date: 20111222
  Serious: No
  Sender: FDA-Public Use
  Company Number: US-KINGPHARMUSA00001-K201001208

PATIENT
  Age: 74 Year
  Sex: Female

DRUGS (7)
  1. LEVOXYL [Suspect]
     Indication: HYPOTHYROIDISM
     Dosage: 25 MCG QAM
     Route: 048
  2. TOPROL-XL [Concomitant]
     Indication: HYPERTENSION
     Dosage: QAM
     Route: 048
  3. ASPIRIN [Concomitant]
     Dosage: UNK
     Route: 048
  4. CYTOMEL [Suspect]
     Dosage: 25 MCG, QAM
     Route: 048
     Dates: start: 20100607, end: 20100617
  5. LIPITOR [Concomitant]
     Dosage: UNK
     Route: 048
  6. XANAX [Concomitant]
     Dosage: UNK
     Route: 048
  7. CYTOMEL [Suspect]
     Indication: HYPOTHYROIDISM
     Dosage: 25 MCG, QAM
     Route: 048
     Dates: start: 20100222, end: 20100509

REACTIONS (5)
  - BLOOD THYROID STIMULATING HORMONE DECREASED [None]
  - FLUSHING [None]
  - VULVOVAGINAL ERYTHEMA [None]
  - MALAISE [None]
  - PALPITATIONS [None]
